FAERS Safety Report 20168479 (Version 5)
Quarter: 2022Q1

REPORT INFORMATION
  Report Type: Spontaneous
  Country: BE (occurrence: BE)
  Receive Date: 20211210
  Receipt Date: 20220111
  Transmission Date: 20220423
  Serious: Yes (Other)
  Sender: FDA-Public Use
  Company Number: BE-THERAMEX-2021001148

PATIENT
  Age: 40 Year
  Sex: Female

DRUGS (3)
  1. BISOPROLOL [Suspect]
     Active Substance: BISOPROLOL
     Indication: Heart rate increased
     Dosage: 5 MILLIGRAM, ONCE A DAY (1.25 MILLIGRAM DAILY; EVERY 2 DAY(S) 2X2.5MG)
     Route: 065
  2. BISOPROLOL [Suspect]
     Active Substance: BISOPROLOL
     Dosage: 2.5 MILLIGRAM, TWO TIMES A DAY (1.25 MILLIGRAM DAILY; EVERY 2 DAY(S) 2X2.5MG )
     Route: 065
  3. NOMEGESTROL ACETATE [Suspect]
     Active Substance: NOMEGESTROL ACETATE
     Indication: Uterine leiomyoma
     Dosage: 5 MILLIGRAM, ONCE A DAY (5 MILLIGRAM DAILY)
     Route: 048
     Dates: start: 2001, end: 20211004

REACTIONS (15)
  - Condition aggravated [Unknown]
  - Muscular weakness [Unknown]
  - Nausea [Not Recovered/Not Resolved]
  - Fatigue [Unknown]
  - Unevaluable event [Unknown]
  - Uterine leiomyoma [Unknown]
  - Cerebral atrophy [Unknown]
  - Asthenia [Unknown]
  - Pyramidal tract syndrome [Unknown]
  - Visual impairment [Unknown]
  - Heart rate increased [Unknown]
  - Uterine leiomyoma [Unknown]
  - Gait inability [Recovering/Resolving]
  - Off label use [Unknown]
  - Amyotrophic lateral sclerosis [Unknown]

NARRATIVE: CASE EVENT DATE: 20200101
